FAERS Safety Report 8419694-9 (Version None)
Quarter: 2012Q2

REPORT INFORMATION
  Report Type: 
  Country: None (occurrence: None)
  Receive Date: 20120604
  Receipt Date: 20120604
  Transmission Date: 20120825
  Serious: Yes (Hospitalization, Disabling)
  Sender: FDA-Public Use
  Company Number: None

PATIENT
  Age: 32 Year
  Sex: Female
  Weight: 70.3075 kg

DRUGS (2)
  1. MICROGESTIN 1.5/30 [Suspect]
     Indication: ENDOMETRIOSIS
     Dosage: 1.5/30 1X DAY PO
     Route: 048
     Dates: start: 20090101, end: 20110801
  2. LUPRON DEPOT [Suspect]
     Indication: ENDOMETRIOSIS
     Dosage: 3.75MG 1XMONTH IM
     Route: 030
     Dates: start: 20090101, end: 20110901

REACTIONS (3)
  - DEEP VEIN THROMBOSIS [None]
  - LOSS OF CONSCIOUSNESS [None]
  - PULMONARY EMBOLISM [None]
